FAERS Safety Report 4360457-1 (Version None)
Quarter: 2004Q2

REPORT INFORMATION
  Report Type: 
  Country: None (occurrence: None)
  Receive Date: 20040514
  Receipt Date: 20040505
  Transmission Date: 20050107
  Serious: Yes (Hospitalization)
  Sender: FDA-Public Use
  Company Number: US-SHR-04-021315

PATIENT
  Age: 47 Year
  Sex: Female
  Weight: 84.8 kg

DRUGS (8)
  1. BETASERON (INTERFERON BETA-1B)INJECTION, 250 UG [Suspect]
     Indication: MULTIPLE SCLEROSIS
     Dosage: 8 MIU, EVERY 2D, SUBCUTANEOUS
     Route: 058
     Dates: start: 19860101
  2. AMANTADINE HCL [Concomitant]
  3. PRILOSEC [Concomitant]
  4. NEURONTIN [Concomitant]
  5. BACLOFEN [Concomitant]
  6. AMITRIPTYLINE HCL [Concomitant]
  7. TIZANIDINE (TIZANIDINE) [Concomitant]
  8. SUDAFED 12 HOUR [Concomitant]

REACTIONS (2)
  - LOCALISED OSTEOARTHRITIS [None]
  - SPINAL OSTEOARTHRITIS [None]
